FAERS Safety Report 23723782 (Version 1)
Quarter: 2024Q2

REPORT INFORMATION
  Report Type: Spontaneous
  Country: US (occurrence: US)
  Receive Date: 20240409
  Receipt Date: 20240409
  Transmission Date: 20240715
  Serious: Yes (Other)
  Sender: FDA-Public Use
  Company Number: US-INTRA-CELLULAR THERAPIES, INC.-2024ICT00481

PATIENT
  Age: 8 Decade
  Sex: Female

DRUGS (1)
  1. CAPLYTA [Suspect]
     Active Substance: LUMATEPERONE
     Dosage: 42 MG, 1X/DAY
     Route: 048

REACTIONS (4)
  - Swollen tongue [Unknown]
  - Mouth swelling [Unknown]
  - Swelling [Unknown]
  - Hypersensitivity [Unknown]
